FAERS Safety Report 5755015-8 (Version None)
Quarter: 2008Q2

REPORT INFORMATION
  Report Type: 
  Country: None (occurrence: None)
  Receive Date: 20080527
  Receipt Date: 20080519
  Transmission Date: 20081010
  Serious: Yes (Disabling)
  Sender: FDA-Public Use
  Company Number: 2008SP005876

PATIENT
  Age: 51 Year
  Sex: Female
  Weight: 61.6892 kg

DRUGS (2)
  1. PEG-INTRON [Suspect]
     Indication: HEPATITIS C
     Dosage: 90 MCG; QW; SC
     Route: 058
     Dates: start: 20080310
  2. RIBAVIRIN [Suspect]
     Indication: HEPATITIS C
     Dosage: 1000 MG; PO
     Route: 048
     Dates: start: 20080310

REACTIONS (10)
  - ANOREXIA [None]
  - BRADYPHRENIA [None]
  - DISTURBANCE IN ATTENTION [None]
  - DYSGEUSIA [None]
  - FATIGUE [None]
  - HAEMOGLOBIN DECREASED [None]
  - INJECTION SITE PAIN [None]
  - IRRITABILITY [None]
  - MOVEMENT DISORDER [None]
  - PYREXIA [None]
